FAERS Safety Report 24550282 (Version 1)
Quarter: 2024Q4

REPORT INFORMATION
  Report Type: Spontaneous
  Country: CN (occurrence: CN)
  Receive Date: 20241025
  Receipt Date: 20241025
  Transmission Date: 20250114
  Serious: Yes (Hospitalization)
  Sender: FRESENIUS KABI
  Company Number: CN-FreseniusKabi-FK202415886

PATIENT
  Age: 27 Year
  Sex: Male
  Weight: 57 kg

DRUGS (5)
  1. PROPOFOL [Suspect]
     Active Substance: PROPOFOL
     Indication: Oesophagogastroscopy
     Dosage: FORM OF ADMIN.: INJECTION
     Route: 042
     Dates: start: 20241009, end: 20241009
  2. PROPOFOL [Suspect]
     Active Substance: PROPOFOL
     Indication: Anaesthesia
  3. LIDOCAINE HYDROCHLORIDE [Concomitant]
     Active Substance: LIDOCAINE HYDROCHLORIDE
     Indication: Oesophagogastroscopy
     Dosage: FORM OF ADMIN.: INJECTION
     Route: 042
     Dates: start: 20241009, end: 20241009
  4. LIDOCAINE HYDROCHLORIDE [Concomitant]
     Active Substance: LIDOCAINE HYDROCHLORIDE
     Indication: Gastritis
  5. LIDOCAINE HYDROCHLORIDE [Concomitant]
     Active Substance: LIDOCAINE HYDROCHLORIDE
     Indication: Anaesthesia

REACTIONS (3)
  - Oxygen saturation decreased [Recovered/Resolved]
  - Restlessness [Unknown]
  - Urinary incontinence [Unknown]

NARRATIVE: CASE EVENT DATE: 20241009
